FAERS Safety Report 23138602 (Version 1)
Quarter: 2023Q4

REPORT INFORMATION
  Report Type: Spontaneous
  Country: US (occurrence: US)
  Receive Date: 20231102
  Receipt Date: 20231102
  Transmission Date: 20240109
  Serious: Yes (Other)
  Sender: FDA-Public Use
  Company Number: US-BRISTOL-MYERS SQUIBB COMPANY-2023-152975

PATIENT
  Age: 70 Year
  Sex: Male

DRUGS (1)
  1. POMALYST [Suspect]
     Active Substance: POMALIDOMIDE
     Indication: Dementia
     Dosage: TAKE 1 CAPSULE BY MOUTH DAILY WITH OR WITHOUT FOOD ON DAYS 1-21
     Route: 048
     Dates: start: 20220916

REACTIONS (3)
  - Laboratory test abnormal [Recovering/Resolving]
  - Gastroenteritis viral [Unknown]
  - Product use in unapproved indication [Unknown]
